FAERS Safety Report 4294053-1 (Version None)
Quarter: 2004Q1

REPORT INFORMATION
  Report Type: 
  Country: None (occurrence: None)
  Receive Date: 20040211
  Receipt Date: 20040126
  Transmission Date: 20041129
  Serious: Yes (Hospitalization)
  Sender: FDA-Public Use
  Company Number: DSA_23933_2004

PATIENT
  Age: 27 Year
  Sex: Female

DRUGS (4)
  1. LORAZEPAM [Suspect]
     Dosage: 5 MG ONCE PO
     Route: 048
     Dates: start: 20040121, end: 20040121
  2. ALCOHOL (CIDER) [Suspect]
     Dosage: 1 BOTTLE ONCE PO
     Route: 048
     Dates: start: 20040121, end: 20040121
  3. ALCOHOL (SPARKLING WINE) [Suspect]
     Dosage: UNK
     Route: 065
     Dates: start: 20040121, end: 20040121
  4. CHLORPROTHIXENE [Suspect]
     Dosage: 300 MG ONCE PO
     Route: 048
     Dates: start: 20040121, end: 20040121

REACTIONS (4)
  - ALCOHOL USE [None]
  - INTENTIONAL OVERDOSE [None]
  - SOMNOLENCE [None]
  - TACHYCARDIA [None]
